FAERS Safety Report 4803057-9 (Version None)
Quarter: 2005Q4

REPORT INFORMATION
  Report Type: 
  Country: None (occurrence: None)
  Receive Date: 20051019
  Receipt Date: 20051006
  Transmission Date: 20060501
  Serious: Yes (Hospitalization)
  Sender: FDA-Public Use
  Company Number: FR-GLAXOSMITHKLINE-B0397328A

PATIENT
  Age: 75 Year
  Sex: Male

DRUGS (6)
  1. AVANDIA [Suspect]
     Route: 048
     Dates: end: 20050601
  2. ALDACTONE [Suspect]
     Dosage: 75MG PER DAY
     Route: 048
     Dates: start: 20050426, end: 20050625
  3. GLUCOPHAGE [Suspect]
     Dosage: 1000MG PER DAY
     Route: 048
     Dates: start: 20000101
  4. ENALAPRIL MALEATE AND HYDROCHLOROTHIAZIDE [Suspect]
     Dosage: .5TAB PER DAY
     Route: 048
     Dates: start: 20040101
  5. KAYEXALATE [Concomitant]
     Dosage: 1SP TWICE PER DAY
     Route: 065
     Dates: start: 20050301
  6. DUPHALAC [Concomitant]
     Dosage: 1UNIT TWICE PER DAY
     Route: 065
     Dates: start: 20050301

REACTIONS (16)
  - ASCITES [None]
  - BLISTER [None]
  - DISORIENTATION [None]
  - ERYTHEMA [None]
  - HEPATIC CIRRHOSIS [None]
  - HYPERGAMMAGLOBULINAEMIA [None]
  - HYPOALBUMINAEMIA [None]
  - MEMORY IMPAIRMENT [None]
  - NIKOLSKY'S SIGN [None]
  - PNEUMONIA MYCOPLASMAL [None]
  - PRURITUS [None]
  - RASH MACULO-PAPULAR [None]
  - RENAL FAILURE CHRONIC [None]
  - SKIN DISORDER [None]
  - STEVENS-JOHNSON SYNDROME [None]
  - TOXIC SKIN ERUPTION [None]
